FAERS Safety Report 6694475-5 (Version None)
Quarter: 2010Q2

REPORT INFORMATION
  Report Type: 
  Country: None (occurrence: None)
  Receive Date: 20100420
  Receipt Date: 20100405
  Transmission Date: 20101027
  Serious: Yes (Other)
  Sender: FDA-Public Use
  Company Number: AUR-APL-2010-00987

PATIENT
  Age: 63 Year
  Sex: Female

DRUGS (2)
  1. TERBINAFINE HCL [Suspect]
     Indication: ONYCHOMYCOSIS
     Dosage: 250MG, UNK, ORAL
     Route: 048
     Dates: start: 20091101, end: 20091201
  2. LEVOTHYROXINE [Concomitant]

REACTIONS (3)
  - AGEUSIA [None]
  - DEPRESSION [None]
  - SALIVARY HYPERSECRETION [None]
